FAERS Safety Report 8880416 (Version 2)
Quarter: 2012Q4

REPORT INFORMATION
  Report Type: 
  Country: US (occurrence: US)
  Receive Date: 20121031
  Receipt Date: 20121204
  Transmission Date: 20130627
  Serious: No
  Sender: FDA-Public Use
  Company Number: US-ASTRAZENECA-2012SE79074

PATIENT
  Age: 74 Year
  Sex: Male
  Weight: 78.9 kg

DRUGS (13)
  1. SYMBICORT [Suspect]
     Indication: CHRONIC OBSTRUCTIVE PULMONARY DISEASE
     Dosage: 160/4.5 MCG TWO PUFFS BID
     Route: 055
  2. SYMBICORT [Suspect]
     Indication: CHRONIC OBSTRUCTIVE PULMONARY DISEASE
     Dosage: 160/4.5 MCG TWO PUFFS BID
     Route: 055
     Dates: start: 2007
  3. BENICAR [Concomitant]
     Indication: HYPERTENSION
     Route: 048
  4. BENICAR [Concomitant]
     Indication: HYPERTENSION
  5. BENSANOTATE [Concomitant]
     Indication: COUGH
     Route: 048
     Dates: start: 2009
  6. BENSANOTATE [Concomitant]
     Indication: INCREASED UPPER AIRWAY SECRETION
     Route: 048
     Dates: start: 2009
  7. BENSANOTATE [Concomitant]
     Indication: CHRONIC OBSTRUCTIVE PULMONARY DISEASE
     Route: 048
     Dates: start: 2009
  8. BENSANOTATE [Concomitant]
     Indication: COUGH
  9. BENSANOTATE [Concomitant]
     Indication: INCREASED UPPER AIRWAY SECRETION
  10. BENSANOTATE [Concomitant]
     Indication: CHRONIC OBSTRUCTIVE PULMONARY DISEASE
  11. APRODINE [Concomitant]
     Indication: NASAL CONGESTION
  12. COMBIVENT [Concomitant]
     Indication: INHALATION THERAPY
     Route: 055
  13. COMBIVENT [Concomitant]
     Indication: CHRONIC OBSTRUCTIVE PULMONARY DISEASE
     Route: 055

REACTIONS (4)
  - Dyspnoea [Unknown]
  - Increased upper airway secretion [Unknown]
  - Circumstance or information capable of leading to medication error [Unknown]
  - Drug dose omission [Unknown]
